FAERS Safety Report 15009608 (Version 2)
Quarter: 2023Q4

REPORT INFORMATION
  Report Type: Spontaneous
  Country: IN (occurrence: IN)
  Receive Date: 20180614
  Receipt Date: 20231030
  Transmission Date: 20240110
  Serious: Yes (Life-Threatening, Hospitalization, Other)
  Sender: FDA-Public Use
  Company Number: IN-HETERO CORPORATE-HET2018IN00520

PATIENT
  Age: 25 Year
  Sex: Male
  Weight: 45 kg

DRUGS (4)
  1. LEVOFLOXACIN [Suspect]
     Active Substance: LEVOFLOXACIN
     Indication: Tuberculosis
     Dosage: 100 MG, ON DAY 1
     Route: 065
  2. LEVOFLOXACIN [Suspect]
     Active Substance: LEVOFLOXACIN
     Dosage: 500 MG, QD, ON DAY 2
  3. CETIRIZINE [Concomitant]
     Active Substance: CETIRIZINE HYDROCHLORIDE
     Indication: Drug eruption
     Dosage: 20 MILLIGRAM, BID
     Route: 065
  4. AZITHROMYCIN [Concomitant]
     Active Substance: AZITHROMYCIN
     Indication: Drug eruption
     Dosage: 500 MILLIGRAM, QD
     Route: 065

REACTIONS (2)
  - Condition aggravated [Unknown]
  - Toxic epidermal necrolysis [Unknown]
